FAERS Safety Report 22159260 (Version 1)
Quarter: 2023Q1

REPORT INFORMATION
  Report Type: Spontaneous
  Country: US (occurrence: US)
  Receive Date: 20230331
  Receipt Date: 20230331
  Transmission Date: 20230418
  Serious: Yes (Other)
  Sender: FDA-Public Use
  Company Number: US-AUROBINDO-AUR-APL-2023-013798

PATIENT
  Age: 61 Year
  Sex: Male

DRUGS (2)
  1. MILRINONE LACTATE [Suspect]
     Active Substance: MILRINONE LACTATE
     Indication: Cardiac failure
     Dosage: 0.5 MICROGRAM/KILOGRAM EVERY MINUTE
     Route: 065
  2. DOBUTAMINE [Suspect]
     Active Substance: DOBUTAMINE HYDROCHLORIDE
     Indication: Cardiac failure
     Dosage: 5 MICROGRAM/KILOGRAM EVERY MINUTE
     Route: 065

REACTIONS (1)
  - Drug ineffective [Unknown]
